FAERS Safety Report 13699282 (Version 2)
Quarter: 2018Q1

REPORT INFORMATION
  Report Type: Report from Study
  Country: None (occurrence: FR)
  Receive Date: 20170628
  Receipt Date: 20180208
  Transmission Date: 20180508
  Serious: Yes (Hospitalization)
  Sender: FDA-Public Use
  Company Number: FR-ABBVIE-17P-056-2018556-00

PATIENT
  Age: 81 Year
  Sex: Female
  Weight: 53 kg

DRUGS (5)
  1. VIEKIRAX [Suspect]
     Active Substance: OMBITASVIR\PARITAPREVIR\RITONAVIR
     Indication: HEPATITIS C
     Dosage: 2 DF IN THE MORNING
     Route: 048
     Dates: start: 20161013, end: 20161209
  2. PRAVASTATINE SODIUM [Concomitant]
     Active Substance: PRAVASTATIN SODIUM
     Indication: HYPERTENSION
  3. EXVIERA [Suspect]
     Active Substance: DASABUVIR
     Indication: HEPATITIS C
     Dosage: 1 DF IN THE MORNING??1 DF IN THE EVENING
     Route: 048
     Dates: start: 20161013, end: 20161209
  4. NIFEDIPINE. [Concomitant]
     Active Substance: NIFEDIPINE
     Indication: ANGINA PECTORIS
  5. IRBESARTAN. [Concomitant]
     Active Substance: IRBESARTAN
     Indication: HYPERTENSION

REACTIONS (1)
  - Pneumonia [Recovered/Resolved]

NARRATIVE: CASE EVENT DATE: 20161104
